FAERS Safety Report 16762144 (Version 1)
Quarter: 2019Q3

REPORT INFORMATION
  Report Type: Spontaneous
  Country: FR (occurrence: FR)
  Receive Date: 20190830
  Receipt Date: 20190830
  Transmission Date: 20191005
  Serious: Yes (Hospitalization)
  Sender: FDA-Public Use
  Company Number: FR-TEIKOKU PHARMA USA-TPU2019-00597

PATIENT
  Age: 96 Year
  Sex: Female

DRUGS (5)
  1. VERSATIS [Suspect]
     Active Substance: LIDOCAINE
     Indication: FALL
     Route: 003
     Dates: start: 20170622
  2. TANGANIL [Suspect]
     Active Substance: ACETYLLEUCINE
     Indication: VERTIGO
     Route: 048
     Dates: start: 20190715, end: 20190722
  3. EUPRESSYL [Suspect]
     Active Substance: URAPIDIL
     Indication: HYPERTENSION
     Route: 048
     Dates: start: 20170622
  4. BROMAZEPAM ARROW [Suspect]
     Active Substance: BROMAZEPAM
     Indication: ANXIETY
     Route: 048
     Dates: start: 20170622
  5. TEMERIT [Suspect]
     Active Substance: NEBIVOLOL
     Indication: HYPERTENSION
     Route: 048
     Dates: start: 20170622

REACTIONS (3)
  - Malaise [Recovered/Resolved]
  - Fall [Recovered/Resolved]
  - Unevaluable event [Unknown]

NARRATIVE: CASE EVENT DATE: 20190722
